FAERS Safety Report 9333977 (Version 1)
Quarter: 2013Q2

REPORT INFORMATION
  Report Type: Spontaneous
  Country: US (occurrence: US)
  Receive Date: 20130606
  Receipt Date: 20130606
  Transmission Date: 20140414
  Serious: No
  Sender: FDA-Public Use
  Company Number: US-AMGEN-USASP2013012526

PATIENT
  Age: 65 Year
  Sex: Female

DRUGS (16)
  1. PROLIA [Suspect]
     Indication: OSTEOPOROSIS POSTMENOPAUSAL
     Dosage: UNK
     Dates: start: 201207
  2. ESTRADIOL [Concomitant]
  3. LEVOTHYROXINE [Concomitant]
  4. SIMVASTATIN [Concomitant]
     Dosage: 5 MG, UNK
  5. OXYCODONE [Concomitant]
     Dosage: 10 MG, UNK
  6. FENTANYL                           /00174602/ [Concomitant]
     Dosage: 100 MUG, UNK
  7. RESTORIL                           /00054301/ [Concomitant]
     Dosage: 30 MG, UNK
  8. VALIUM                             /00017001/ [Concomitant]
     Dosage: 10 MG, UNK
  9. VITAMIN D                          /00107901/ [Concomitant]
  10. VITAMIN B12                        /00056201/ [Concomitant]
  11. CALCIUM [Concomitant]
     Dosage: 1500 MG, UNK
  12. FISH OIL [Concomitant]
  13. ACYCLOVIR                          /00587301/ [Concomitant]
  14. POTASSIUM [Concomitant]
  15. LEVOTHYROX [Concomitant]
  16. LASIX                              /00032601/ [Concomitant]

REACTIONS (2)
  - Joint stiffness [Recovered/Resolved]
  - Musculoskeletal pain [Recovered/Resolved]
